FAERS Safety Report 18679729 (Version 1)
Quarter: 2020Q4

REPORT INFORMATION
  Report Type: Other
  Country: KR (occurrence: KR)
  Receive Date: 20201230
  Receipt Date: 20201230
  Transmission Date: 20210114
  Serious: Yes (Other)
  Sender: FDA-Public Use
  Company Number: KR-ROCHE-2740170

PATIENT

DRUGS (2)
  1. PEMBROLIZUMAB. [Suspect]
     Active Substance: PEMBROLIZUMAB
     Indication: NON-SMALL CELL LUNG CANCER
     Route: 065
  2. ATEZOLIZUMAB. [Suspect]
     Active Substance: ATEZOLIZUMAB
     Indication: NON-SMALL CELL LUNG CANCER
     Route: 065

REACTIONS (22)
  - Pneumonitis [Unknown]
  - Diarrhoea [Unknown]
  - Thrombocytopenia [Unknown]
  - Pyrexia [Unknown]
  - Neutropenia [Unknown]
  - Pneumonia [Unknown]
  - Febrile neutropenia [Unknown]
  - Blood creatinine increased [Unknown]
  - Dyspnoea [Unknown]
  - Endocrine disorder [Unknown]
  - Colitis [Unknown]
  - Anaemia [Unknown]
  - Eye disorder [Unknown]
  - Leukopenia [Unknown]
  - Rash [Unknown]
  - Vomiting [Unknown]
  - Cough [Unknown]
  - Hyperglycaemia [Unknown]
  - Fatigue [Unknown]
  - Autoimmune hepatitis [Unknown]
  - Hypertension [Unknown]
  - Neuropathy peripheral [Unknown]
